FAERS Safety Report 25315556 (Version 1)
Quarter: 2025Q2

REPORT INFORMATION
  Report Type: Spontaneous
  Country: US (occurrence: US)
  Receive Date: 20250514
  Receipt Date: 20250514
  Transmission Date: 20250717
  Serious: No
  Sender: ELI LILLY AND COMPANY
  Company Number: US-ELI_LILLY_AND_COMPANY-US202505009510

PATIENT
  Age: 70 Year
  Sex: Male

DRUGS (20)
  1. MOUNJARO [Suspect]
     Active Substance: TIRZEPATIDE
     Indication: Type II hyperlipidaemia
     Route: 058
  2. MOUNJARO [Suspect]
     Active Substance: TIRZEPATIDE
     Indication: Type II hyperlipidaemia
     Route: 058
  3. MOUNJARO [Suspect]
     Active Substance: TIRZEPATIDE
     Indication: Type II hyperlipidaemia
     Route: 058
  4. MOUNJARO [Suspect]
     Active Substance: TIRZEPATIDE
     Indication: Type II hyperlipidaemia
     Route: 058
  5. MOUNJARO [Suspect]
     Active Substance: TIRZEPATIDE
     Indication: Type II hyperlipidaemia
     Route: 058
  6. MOUNJARO [Suspect]
     Active Substance: TIRZEPATIDE
     Indication: Type II hyperlipidaemia
     Route: 058
  7. MOUNJARO [Suspect]
     Active Substance: TIRZEPATIDE
     Indication: Type II hyperlipidaemia
     Route: 058
  8. MOUNJARO [Suspect]
     Active Substance: TIRZEPATIDE
     Indication: Type II hyperlipidaemia
     Route: 058
  9. MOUNJARO [Suspect]
     Active Substance: TIRZEPATIDE
     Indication: Type II hyperlipidaemia
     Route: 058
  10. MOUNJARO [Suspect]
     Active Substance: TIRZEPATIDE
     Indication: Type II hyperlipidaemia
     Route: 058
  11. MOUNJARO [Suspect]
     Active Substance: TIRZEPATIDE
     Indication: Type II hyperlipidaemia
     Route: 058
  12. MOUNJARO [Suspect]
     Active Substance: TIRZEPATIDE
     Indication: Type II hyperlipidaemia
     Route: 058
  13. MOUNJARO [Suspect]
     Active Substance: TIRZEPATIDE
     Indication: Type II hyperlipidaemia
     Route: 058
  14. MOUNJARO [Suspect]
     Active Substance: TIRZEPATIDE
     Indication: Type II hyperlipidaemia
     Route: 058
  15. MOUNJARO [Suspect]
     Active Substance: TIRZEPATIDE
     Indication: Type II hyperlipidaemia
     Route: 058
  16. MOUNJARO [Suspect]
     Active Substance: TIRZEPATIDE
     Indication: Type II hyperlipidaemia
     Route: 058
  17. MOUNJARO [Suspect]
     Active Substance: TIRZEPATIDE
     Indication: Type II hyperlipidaemia
     Route: 058
     Dates: start: 20250511
  18. MOUNJARO [Suspect]
     Active Substance: TIRZEPATIDE
     Indication: Type II hyperlipidaemia
     Route: 058
     Dates: start: 20250511
  19. MOUNJARO [Suspect]
     Active Substance: TIRZEPATIDE
     Indication: Type II hyperlipidaemia
     Route: 058
     Dates: start: 20250511
  20. MOUNJARO [Suspect]
     Active Substance: TIRZEPATIDE
     Indication: Type II hyperlipidaemia
     Route: 058
     Dates: start: 20250511

REACTIONS (2)
  - Off label use [Unknown]
  - Incorrect dose administered [Unknown]

NARRATIVE: CASE EVENT DATE: 20250511
